FAERS Safety Report 5382626-4 (Version None)
Quarter: 2007Q3

REPORT INFORMATION
  Report Type: 
  Country: None (occurrence: None)
  Receive Date: 20070702
  Receipt Date: 20070301
  Transmission Date: 20080115
  Serious: No
  Sender: FDA-Public Use
  Company Number: 2007PV030909

PATIENT
  Age: 34 Year
  Sex: Female

DRUGS (5)
  1. SYMLIN [Suspect]
     Indication: GLUCOSE TOLERANCE IMPAIRED
     Dosage: ;BIW;SC : 30 MCG;TID;SC
     Route: 058
     Dates: start: 20060101, end: 20061201
  2. SYMLIN [Suspect]
     Indication: GLUCOSE TOLERANCE IMPAIRED
     Dosage: ;BIW;SC : 30 MCG;TID;SC
     Route: 058
     Dates: start: 20061201
  3. INSULIN [Concomitant]
  4. NOVOLOG [Concomitant]
  5. ENBREL [Concomitant]

REACTIONS (2)
  - DRUG INEFFECTIVE [None]
  - STRESS [None]
